FAERS Safety Report 10444038 (Version 2)
Quarter: 2014Q4

REPORT INFORMATION
  Report Type: Other
  Country: IT (occurrence: IT)
  Receive Date: 20140910
  Receipt Date: 20141231
  Transmission Date: 20150528
  Serious: Yes (Hospitalization)
  Sender: FDA-Public Use
  Company Number: IT-SUN PHARMACEUTICAL INDUSTRIES LTD-2014SUN02036

PATIENT

DRUGS (10)
  1. CARBOLITHIUM [Concomitant]
     Active Substance: LITHIUM CARBONATE
     Indication: BIPOLAR DISORDER
     Dosage: 150 MG
     Route: 048
     Dates: start: 20140401, end: 20140416
  2. JUMEX ^5 MG COMPRESSE^ 50 COMPRESSE [Concomitant]
     Indication: BIPOLAR DISORDER
     Dosage: 1 DF
     Route: 048
     Dates: start: 20140401, end: 20140416
  3. OLANZAPINE 5 MG TABLETS [Suspect]
     Active Substance: OLANZAPINE
     Indication: BIPOLAR DISORDER
     Dosage: 5 MG DAILY
     Route: 048
     Dates: start: 20140401, end: 20140416
  4. LARGACTIL ^25 MG COMPRESSE RIVESTITE CON FILM^ 25 COMPRESSE - ( TEOFAR [Interacting]
     Active Substance: CHLORPROMAZINE
     Indication: BIPOLAR DISORDER
     Dosage: 1 DF DAILY
     Route: 048
     Dates: start: 20140401, end: 20140416
  5. NOVONORM 0,5 MG COMPRESSE-100 COMRESSE IN FLACONE [Concomitant]
     Indication: DIABETES MELLITUS
     Dosage: 3 DF
     Route: 048
  6. NIMODIPINE. [Concomitant]
     Active Substance: NIMODIPINE
     Indication: HYPERTENSION
  7. ZOCOR ^10 MG COMPRESSE RIVESTITE CON FILM^ 20 COMPRESSE [Concomitant]
     Indication: DYSLIPIDAEMIA
     Dosage: 1 DF
     Route: 048
  8. DEPAKIN ^CHRONO 500 MG COMPRESSE A RILASCIO PROLUNGATO^ BLISTER DA 30 [Interacting]
     Active Substance: VALPROATE SODIUM
     Indication: BIPOLAR DISORDER
     Dosage: 2 DF DAILY
     Route: 048
     Dates: start: 20140401, end: 20140416
  9. GABAPENTINA [Interacting]
     Active Substance: GABAPENTIN
     Indication: BIPOLAR DISORDER
     Dosage: 800 MG DAILY
     Route: 048
     Dates: start: 20140401, end: 20140416
  10. CARDIRENE ^160 MG POLVERE PER SOLUZIONE ORALE^30 BUSTINE [Concomitant]
     Indication: PRODUCT USED FOR UNKNOWN INDICATION
     Dosage: 1 DF
     Route: 048

REACTIONS (5)
  - Blood pressure systolic increased [None]
  - Sedation [Recovering/Resolving]
  - Head injury [Recovering/Resolving]
  - Drug interaction [Recovering/Resolving]
  - Face injury [None]

NARRATIVE: CASE EVENT DATE: 20140417
